FAERS Safety Report 4312393-4 (Version None)
Quarter: 2004Q1

REPORT INFORMATION
  Report Type: 
  Country: None (occurrence: None)
  Receive Date: 20040303
  Receipt Date: 20040219
  Transmission Date: 20041129
  Serious: Yes (Death, Other)
  Sender: FDA-Public Use
  Company Number: US067330

PATIENT
  Age: 58 Year
  Sex: Male

DRUGS (5)
  1. ENBREL [Suspect]
     Indication: PSORIATIC ARTHROPATHY
     Dosage: 25 MG, 2 IN 1 WEEKS, SC
     Route: 058
     Dates: start: 20040101
  2. GLYBURIDE [Concomitant]
  3. METFORMIN HCL [Concomitant]
  4. CELECOXIB [Concomitant]
  5. PREDNISOLONE [Concomitant]

REACTIONS (4)
  - ABDOMINAL DISTENSION [None]
  - ASTHENIA [None]
  - OEDEMA PERIPHERAL [None]
  - PULMONARY OEDEMA [None]
